FAERS Safety Report 13444908 (Version 2)
Quarter: 2017Q3

REPORT INFORMATION
  Report Type: Spontaneous
  Country: FR (occurrence: FR)
  Receive Date: 20170414
  Receipt Date: 20170711
  Transmission Date: 20171127
  Serious: Yes (Hospitalization)
  Sender: FDA-Public Use
  Company Number: FR-PFIZER INC-2017163785

PATIENT
  Age: 28 Year
  Sex: Female

DRUGS (5)
  1. CYTOTEC [Suspect]
     Active Substance: MISOPROSTOL
     Indication: ABORTION INDUCED
     Dosage: 400 UG, SINGLE
     Route: 048
     Dates: start: 20050414, end: 20050414
  2. MIFEGYNE [Suspect]
     Active Substance: MIFEPRISTONE
     Indication: ABORTION INDUCED
     Dosage: 600 MG, SINGLE
     Route: 048
     Dates: start: 20050411, end: 20050411
  3. SERETIDE [Suspect]
     Active Substance: FLUTICASONE PROPIONATE\SALMETEROL XINAFOATE
     Dosage: UNK
     Dates: end: 20050331
  4. SINGULAIR [Suspect]
     Active Substance: MONTELUKAST SODIUM
     Dosage: UNK
     Dates: end: 20050331
  5. AERIUS [Suspect]
     Active Substance: DESLORATADINE
     Dosage: UNK
     Dates: end: 20050331

REACTIONS (4)
  - Product use in unapproved indication [Unknown]
  - Tachycardia [Recovered/Resolved]
  - Urticaria [Recovered/Resolved]
  - Asthma [Recovered/Resolved]

NARRATIVE: CASE EVENT DATE: 20050414
